FAERS Safety Report 19521131 (Version 1)
Quarter: 2021Q3

REPORT INFORMATION
  Report Type: Spontaneous
  Country: US (occurrence: US)
  Receive Date: 20210712
  Receipt Date: 20210712
  Transmission Date: 20211014
  Serious: Yes (Other)
  Sender: FDA-Public Use
  Company Number: US-SAGENT PHARMACEUTICALS-2021SAG001497

PATIENT
  Age: 72 Year
  Sex: Female

DRUGS (8)
  1. CYCLOPHOSPHAMIDE. [Suspect]
     Active Substance: CYCLOPHOSPHAMIDE
     Indication: TRIPLE HIT LYMPHOMA
     Dosage: UNK
  2. VENETOCLAX. [Suspect]
     Active Substance: VENETOCLAX
     Indication: TRIPLE HIT LYMPHOMA
     Dosage: 600 MG, QD
  3. DOXORUBICIN HCL [Suspect]
     Active Substance: DOXORUBICIN HYDROCHLORIDE
     Indication: TRIPLE HIT LYMPHOMA
     Dosage: UNK
  4. RITUXIMAB. [Suspect]
     Active Substance: RITUXIMAB
     Indication: TRIPLE HIT LYMPHOMA
     Dosage: UNK
  5. ETOPOSIDE. [Suspect]
     Active Substance: ETOPOSIDE
     Indication: TRIPLE HIT LYMPHOMA
     Dosage: UNK
  6. PREDNISONE. [Suspect]
     Active Substance: PREDNISONE
     Indication: TRIPLE HIT LYMPHOMA
     Dosage: UNK
  7. VINCRISTINE [Suspect]
     Active Substance: VINCRISTINE
     Indication: TRIPLE HIT LYMPHOMA
     Dosage: UNK
  8. METHOTREXATE. [Suspect]
     Active Substance: METHOTREXATE
     Indication: TRIPLE HIT LYMPHOMA
     Dosage: UNK
     Route: 037

REACTIONS (7)
  - Neuropathy peripheral [Not Recovered/Not Resolved]
  - Dysphonia [Recovering/Resolving]
  - Alopecia [Unknown]
  - Gastrooesophageal reflux disease [Recovering/Resolving]
  - Decreased appetite [Recovering/Resolving]
  - Nausea [Unknown]
  - Vocal cord paralysis [Unknown]
